FAERS Safety Report 23222779 (Version 1)
Quarter: 2023Q4

REPORT INFORMATION
  Report Type: Spontaneous
  Country: US (occurrence: US)
  Receive Date: 20231123
  Receipt Date: 20231123
  Transmission Date: 20240110
  Serious: No
  Sender: FDA-Public Use
  Company Number: US-CIPLA LTD.-2023US00164

PATIENT

DRUGS (3)
  1. GABAPENTIN [Suspect]
     Active Substance: GABAPENTIN
     Indication: Myalgia
     Dosage: 300 MILLIGRAM, TID (3 CAPSULES, 8 HOURS APART)
     Route: 048
     Dates: start: 202212
  2. GABAPENTIN [Suspect]
     Active Substance: GABAPENTIN
     Dosage: UNK, DOSE REDUCED
     Route: 048
  3. LEVOTHYROXINE [Concomitant]
     Active Substance: LEVOTHYROXINE
     Indication: Hypothyroidism
     Dosage: 137.5 MICROGRAM,  UNK (1 PILL)
     Route: 065
     Dates: start: 2008

REACTIONS (5)
  - Drug ineffective [Unknown]
  - Physical product label issue [Unknown]
  - Off label use [Unknown]
  - Product use in unapproved indication [Unknown]
  - Rash [Not Recovered/Not Resolved]

NARRATIVE: CASE EVENT DATE: 20221201
